FAERS Safety Report 15837710 (Version 1)
Quarter: 2019Q1

REPORT INFORMATION
  Report Type: Spontaneous
  Country: US (occurrence: US)
  Receive Date: 20190116
  Receipt Date: 20190116
  Transmission Date: 20190417
  Serious: Yes (Hospitalization)
  Sender: FDA-Public Use
  Company Number: None

PATIENT
  Age: 95 Year

DRUGS (1)
  1. TADALAFIL. [Suspect]
     Active Substance: TADALAFIL

REACTIONS (1)
  - Cardiac disorder [None]
